FAERS Safety Report 4585878-3 (Version None)
Quarter: 2005Q1

REPORT INFORMATION
  Report Type: 
  Country: None (occurrence: None)
  Receive Date: 20050217
  Receipt Date: 20050207
  Transmission Date: 20050727
  Serious: Yes (Other)
  Sender: FDA-Public Use
  Company Number: GB-GLAXOSMITHKLINE-B0370271A

PATIENT
  Age: 47 Year
  Sex: Female

DRUGS (3)
  1. LAMOTRIGINE [Suspect]
     Indication: DEPRESSION
     Dosage: 250MG UNKNOWN
     Route: 048
     Dates: start: 20040701
  2. MIRTAZAPINE [Suspect]
     Indication: DEPRESSION
     Dosage: 45MG UNKNOWN
     Route: 048
     Dates: start: 20040303
  3. DIURETIC [Concomitant]
     Route: 048

REACTIONS (1)
  - DIABETES MELLITUS [None]
